FAERS Safety Report 12894554 (Version 1)
Quarter: 2016Q4

REPORT INFORMATION
  Report Type: Report from Study
  Country: AU (occurrence: AU)
  Receive Date: 20161028
  Receipt Date: 20161028
  Transmission Date: 20170207
  Serious: Yes (Hospitalization)
  Sender: FDA-Public Use
  Company Number: AU-MYLANLABS-2016M1034752

PATIENT
  Sex: Male

DRUGS (3)
  1. CLOZAPINE. [Suspect]
     Active Substance: CLOZAPINE
     Dosage: UNK
     Route: 048
  2. CLOZAPINE. [Suspect]
     Active Substance: CLOZAPINE
     Indication: SCHIZOPHRENIA
     Dosage: 1 DF, TID
     Route: 048
     Dates: start: 20090504
  3. VALPRO [Suspect]
     Active Substance: VALPROATE SODIUM
     Indication: PRODUCT USED FOR UNKNOWN INDICATION
     Dosage: 200 MG, UNK
     Route: 048

REACTIONS (2)
  - Haemophilus infection [Unknown]
  - Antipsychotic drug level increased [Unknown]
